FAERS Safety Report 9235881 (Version 7)
Quarter: 2014Q2

REPORT INFORMATION
  Report Type: Spontaneous
  Country: US (occurrence: US)
  Receive Date: 20130417
  Receipt Date: 20140430
  Transmission Date: 20141212
  Serious: Yes (Other)
  Sender: FDA-Public Use
  Company Number: US-ASTELLAS-2013US004020

PATIENT
  Age: 87 Year
  Sex: Male
  Weight: 63 kg

DRUGS (6)
  1. XTANDI [Suspect]
     Indication: PROSTATE CANCER
     Route: 048
     Dates: start: 201301
  2. XTANDI [Suspect]
     Dosage: UNK, UNKNOWN FREQ.
     Route: 065
  3. TAMSULOSIN [Concomitant]
     Indication: MICTURITION DISORDER
     Dosage: 0.4 MG, ONCE DAILY
     Route: 048
  4. BABY ASPIRIN [Concomitant]
     Indication: PRODUCT USED FOR UNKNOWN INDICATION
     Route: 048
  5. LORAZEPAM [Concomitant]
     Indication: ANXIETY
     Dosage: 0.5 MG, ONCE DAILY
     Route: 048
  6. VITAMINS                           /00067501/ [Concomitant]
     Indication: PRODUCT USED FOR UNKNOWN INDICATION
     Route: 065

REACTIONS (20)
  - Vision blurred [Unknown]
  - Hypotension [Recovered/Resolved]
  - Hypertension [Recovered/Resolved]
  - Asthenopia [Unknown]
  - Eye discharge [Unknown]
  - Sleep disorder [Unknown]
  - Lacrimation increased [Unknown]
  - Feeling abnormal [Not Recovered/Not Resolved]
  - Hypersensitivity [Unknown]
  - Balance disorder [Not Recovered/Not Resolved]
  - Abdominal discomfort [Unknown]
  - Erythema [Unknown]
  - Nausea [Unknown]
  - Exfoliative rash [Recovered/Resolved]
  - Back pain [Unknown]
  - Dizziness [Not Recovered/Not Resolved]
  - Fatigue [Not Recovered/Not Resolved]
  - Eye pruritus [Unknown]
  - Headache [Not Recovered/Not Resolved]
  - Rash [Unknown]
